FAERS Safety Report 6142751-7 (Version None)
Quarter: 2009Q2

REPORT INFORMATION
  Report Type: 
  Country: None (occurrence: None)
  Receive Date: 20090403
  Receipt Date: 20090326
  Transmission Date: 20091009
  Serious: Yes (Hospitalization)
  Sender: FDA-Public Use
  Company Number: PHHO2009AU03650

PATIENT
  Sex: Male
  Weight: 57 kg

DRUGS (3)
  1. CGP 57148B T35717+ [Suspect]
     Indication: COLORECTAL CANCER
     Dosage: 600 MG, QD
     Route: 048
     Dates: start: 20081230, end: 20090310
  2. FOLFOX [Suspect]
     Indication: COLORECTAL CANCER
     Dosage: UNK
     Dates: start: 20081230, end: 20090310
  3. AVASTIN [Suspect]
     Indication: COLORECTAL CANCER
     Dosage: UNK
     Route: 042
     Dates: start: 20081230, end: 20090224

REACTIONS (4)
  - BODY TEMPERATURE INCREASED [None]
  - NEUTROPENIA [None]
  - NEUTROPHIL COUNT DECREASED [None]
  - ORAL INFECTION [None]
